FAERS Safety Report 6974913-0 (Version None)
Quarter: 2010Q3

REPORT INFORMATION
  Report Type: 
  Country: None (occurrence: None)
  Receive Date: 20100909
  Receipt Date: 20090106
  Transmission Date: 20110219
  Serious: No
  Sender: FDA-Public Use
  Company Number: US-WYE-H07610409

PATIENT
  Age: 69 Year
  Sex: Female

DRUGS (2)
  1. PRISTIQ [Suspect]
     Indication: DEPRESSION
     Route: 048
  2. ABILIFY [Suspect]
     Dosage: 5 MG (FREQUENCY UNSPECIFIED)
     Route: 048

REACTIONS (1)
  - MUSCLE SPASMS [None]
